FAERS Safety Report 9442354 (Version 2)
Quarter: 2014Q3

REPORT INFORMATION
  Report Type: Spontaneous
  Country: US (occurrence: US)
  Receive Date: 20130806
  Receipt Date: 20140806
  Transmission Date: 20150326
  Serious: No
  Sender: FDA-Public Use
  Company Number: US-GLAXOSMITHKLINE-A1010408A

PATIENT
  Age: 70 Year
  Sex: Male
  Weight: 102.3 kg

DRUGS (5)
  1. DOXAZOSIN [Concomitant]
     Active Substance: DOXAZOSIN\DOXAZOSIN MESYLATE
  2. BABY ASPIRIN [Concomitant]
     Active Substance: ASPIRIN
  3. SPIRIVA [Concomitant]
     Active Substance: TIOTROPIUM BROMIDE MONOHYDRATE
  4. ADVAIR HFA [Suspect]
     Active Substance: FLUTICASONE PROPIONATE\SALMETEROL XINAFOATE
     Indication: DYSPNOEA
     Dosage: 1PUFF TWICE PER DAY
     Route: 055
     Dates: start: 20121203, end: 201212
  5. CENTRUM SILVER [Concomitant]
     Active Substance: VITAMINS

REACTIONS (6)
  - Tooth loss [Unknown]
  - Dry mouth [Unknown]
  - Drug administration error [Unknown]
  - Drug ineffective [Unknown]
  - Device failure [Unknown]
  - Dental caries [Unknown]

NARRATIVE: CASE EVENT DATE: 20121215
